FAERS Safety Report 6449007-3 (Version None)
Quarter: 2009Q4

REPORT INFORMATION
  Report Type: 
  Country: None (occurrence: None)
  Receive Date: 20091120
  Receipt Date: 20091113
  Transmission Date: 20100525
  Serious: Yes (Hospitalization)
  Sender: FDA-Public Use
  Company Number: A0818217A

PATIENT
  Age: 52 Year
  Sex: Female

DRUGS (3)
  1. TYKERB [Suspect]
     Indication: DRUG USE FOR UNKNOWN INDICATION
     Dosage: 5TAB PER DAY
     Dates: start: 20091103
  2. XELODA [Suspect]
     Indication: DRUG USE FOR UNKNOWN INDICATION
     Dates: start: 20091103
  3. PAIN MEDICATION [Suspect]
     Indication: PAIN

REACTIONS (6)
  - ADVERSE EVENT [None]
  - CONSTIPATION [None]
  - DIARRHOEA [None]
  - FATIGUE [None]
  - MUSCLE DISORDER [None]
  - PAIN [None]
